FAERS Safety Report 22147049 (Version 1)
Quarter: 2023Q1

REPORT INFORMATION
  Report Type: Spontaneous
  Country: US (occurrence: None)
  Receive Date: 20230327
  Receipt Date: 20230327
  Transmission Date: 20230418
  Serious: Yes (Hospitalization)
  Sender: FDA-Public Use
  Company Number: None

PATIENT
  Age: 86 Year
  Sex: Female
  Weight: 57.61 kg

DRUGS (9)
  1. LENALIDOMIDE [Suspect]
     Active Substance: LENALIDOMIDE
     Indication: Follicular lymphoma stage I
     Dosage: 10MG 21D ON 7D OFF ORAL?
     Route: 048
  2. METOPROLOL SUCCINATE [Suspect]
     Active Substance: METOPROLOL SUCCINATE
  3. ASPIRIN EC LOW [Concomitant]
  4. VITAMIN B COMPLEX [Concomitant]
     Active Substance: CYANOCOBALAMIN\DEXPANTHENOL\NIACINAMIDE\PYRIDOXINE HYDROCHLORIDE\RIBOFLAVIN 5^-PHOSPHATE SODIUM\THIA
  5. CLARITIN [Concomitant]
     Active Substance: LORATADINE
  6. CALCIUM CITRATE + D3 [Concomitant]
  7. ALBUTEROL\IPRATROPIUM [Concomitant]
     Active Substance: ALBUTEROL\IPRATROPIUM
  8. METOPROLOL [Concomitant]
  9. XARELTO [Concomitant]
     Active Substance: RIVAROXABAN

REACTIONS (5)
  - Syncope [None]
  - Atrial fibrillation [None]
  - Therapy cessation [None]
  - Fatigue [None]
  - Therapy interrupted [None]
